FAERS Safety Report 13839184 (Version 1)
Quarter: 2017Q3

REPORT INFORMATION
  Report Type: Other
  Country: SI (occurrence: SI)
  Receive Date: 20170807
  Receipt Date: 20170807
  Transmission Date: 20171127
  Serious: Yes (Other)
  Sender: FDA-Public Use
  Company Number: SI-VELOXIS PHARMACEUTICALS-2024256

PATIENT
  Age: 69 Year
  Sex: Female

DRUGS (3)
  1. ENVARSUS XR [Suspect]
     Active Substance: TACROLIMUS
     Indication: RENAL TRANSPLANT
  2. MYCOPHENOLATE MOFETIL. [Suspect]
     Active Substance: MYCOPHENOLATE MOFETIL
  3. METHYLPREDNISOLONE. [Suspect]
     Active Substance: METHYLPREDNISOLONE

REACTIONS (3)
  - Kidney transplant rejection [None]
  - Polyomavirus-associated nephropathy [Unknown]
  - BK virus infection [Recovering/Resolving]
